FAERS Safety Report 13631986 (Version 1)
Quarter: 2017Q2

REPORT INFORMATION
  Report Type: Spontaneous
  Country: US (occurrence: US)
  Receive Date: 20170531
  Receipt Date: 20170531
  Transmission Date: 20170830
  Serious: No
  Sender: FDA-Public Use
  Company Number: US-ASTELLAS-1431128

PATIENT
  Age: 82 Year
  Sex: Female

DRUGS (5)
  1. TARCEVA [Suspect]
     Active Substance: ERLOTINIB HYDROCHLORIDE
     Route: 048
     Dates: end: 20140620
  2. TARCEVA [Suspect]
     Active Substance: ERLOTINIB HYDROCHLORIDE
     Indication: LUNG NEOPLASM MALIGNANT
     Route: 048
     Dates: start: 20130214
  3. TARCEVA [Suspect]
     Active Substance: ERLOTINIB HYDROCHLORIDE
     Indication: LUNG NEOPLASM MALIGNANT
     Dosage: HOLD FOR 2 WEEKS
     Route: 048
     Dates: start: 201309
  4. TARCEVA [Suspect]
     Active Substance: ERLOTINIB HYDROCHLORIDE
     Route: 048
     Dates: start: 20140306
  5. TARCEVA [Suspect]
     Active Substance: ERLOTINIB HYDROCHLORIDE
     Route: 048
     Dates: start: 201312

REACTIONS (4)
  - Nail disorder [Recovered/Resolved]
  - Palmar-plantar erythrodysaesthesia syndrome [Unknown]
  - Dermatitis acneiform [Recovered/Resolved]
  - Neuropathy peripheral [Recovered/Resolved]

NARRATIVE: CASE EVENT DATE: 201309
